FAERS Safety Report 8851661 (Version 1)
Quarter: 2012Q4

REPORT INFORMATION
  Report Type: 
  Country: US (occurrence: US)
  Receive Date: 20121022
  Receipt Date: 20121022
  Transmission Date: 20130627
  Serious: No
  Sender: FDA-Public Use
  Company Number: US-009507513-1210USA008111

PATIENT
  Sex: Female

DRUGS (3)
  1. VICTRELIS [Suspect]
     Indication: HEPATITIS C
     Dosage: 800 mg, q8h
     Route: 048
     Dates: start: 2012
  2. PEGASYS [Suspect]
  3. RIBAPAK [Suspect]

REACTIONS (2)
  - No therapeutic response [Unknown]
  - Viral load increased [Unknown]
